FAERS Safety Report 13306704 (Version 1)
Quarter: 2017Q1

REPORT INFORMATION
  Report Type: Spontaneous
  Country: US (occurrence: US)
  Receive Date: 20170308
  Receipt Date: 20170308
  Transmission Date: 20170428
  Serious: No
  Sender: FDA-Public Use
  Company Number: US-AKORN PHARMACEUTICALS-2016AKN00895

PATIENT
  Sex: Female

DRUGS (2)
  1. MYORISAN [Suspect]
     Active Substance: ISOTRETINOIN
     Dosage: 20 MG, 1X/DAY
     Dates: end: 201610
  2. MYORISAN [Suspect]
     Active Substance: ISOTRETINOIN
     Dosage: UNK

REACTIONS (2)
  - Drug effect incomplete [Unknown]
  - Intercepted drug dispensing error [Unknown]
